FAERS Safety Report 6164866-X (Version None)
Quarter: 2009Q2

REPORT INFORMATION
  Report Type: 
  Country: None (occurrence: None)
  Receive Date: 20090423
  Receipt Date: 20090421
  Transmission Date: 20091009
  Serious: Yes (Life-Threatening, Hospitalization, Other)
  Sender: FDA-Public Use
  Company Number: SE-ASTRAZENECA-2008SE00838

PATIENT
  Age: 28038 Day
  Sex: Female

DRUGS (11)
  1. SELOKEN ZOC [Suspect]
     Route: 048
     Dates: start: 20080211
  2. AZD6140 [Suspect]
     Indication: ACUTE CORONARY SYNDROME
     Route: 048
     Dates: start: 20080212
  3. DIAZEPAM [Concomitant]
     Dates: start: 20080212, end: 20080212
  4. AVANDAMET [Concomitant]
  5. LASIX [Concomitant]
  6. SIMVASTATIN [Concomitant]
  7. KININ [Concomitant]
     Dates: end: 20080211
  8. LEVOTHYROXINE SODIUM [Concomitant]
  9. PLAVIX [Concomitant]
     Dates: start: 20080211, end: 20080212
  10. TROMBYL [Concomitant]
  11. FRAGMIN [Concomitant]
     Dates: start: 20080211, end: 20080212

REACTIONS (1)
  - CARDIAC ARREST [None]
